FAERS Safety Report 8260026-7 (Version None)
Quarter: 2012Q2

REPORT INFORMATION
  Report Type: 
  Country: None (occurrence: None)
  Receive Date: 20120404
  Receipt Date: 20120327
  Transmission Date: 20120825
  Serious: Yes (Hospitalization)
  Sender: FDA-Public Use
  Company Number: BR-BIOMARINP-002420

PATIENT
  Sex: Female

DRUGS (4)
  1. AMIKACIN [Concomitant]
  2. OXACILLIN [Concomitant]
  3. NAGLAZYME [Suspect]
     Indication: MUCOPOLYSACCHARIDOSIS VI
     Route: 041
     Dates: start: 20070301
  4. HYDROCORTISONE [Concomitant]

REACTIONS (3)
  - CONVULSION [None]
  - ASTHMA [None]
  - PNEUMONIA [None]
